FAERS Safety Report 8024079-3 (Version None)
Quarter: 2011Q4

REPORT INFORMATION
  Report Type: 
  Country: None (occurrence: None)
  Receive Date: 20111130
  Receipt Date: 20101027
  Transmission Date: 20120403
  Serious: Yes (Other)
  Sender: FDA-Public Use
  Company Number: 317213

PATIENT
  Age: 51 Year
  Sex: Female

DRUGS (2)
  1. NOVOLOG [Suspect]
     Indication: TYPE 2 DIABETES MELLITUS
     Dosage: 4 IU, SINGLE, SUBCUTANEOUS
     Route: 058
     Dates: start: 20101024, end: 20101024
  2. AVANDIA [Concomitant]

REACTIONS (1)
  - ANAPHYLACTIC REACTION [None]
